FAERS Safety Report 8288397-6 (Version None)
Quarter: 2012Q2

REPORT INFORMATION
  Report Type: 
  Country: None (occurrence: None)
  Receive Date: 20120416
  Receipt Date: 20120409
  Transmission Date: 20120825
  Serious: Yes (Other)
  Sender: FDA-Public Use
  Company Number: US-AMGEN-USASP2011066567

PATIENT
  Age: 65 Year
  Sex: Female

DRUGS (2)
  1. ENBREL [Suspect]
     Dosage: 50 MG, QWK
     Dates: start: 20101030
  2. ENBREL [Suspect]
     Indication: RHEUMATOID ARTHRITIS
     Dosage: 50 MG, QWK
     Route: 058
     Dates: start: 20110421

REACTIONS (8)
  - FALL [None]
  - FATIGUE [None]
  - CONSTIPATION [None]
  - INJECTION SITE HAEMATOMA [None]
  - SYNCOPE [None]
  - ANAEMIA [None]
  - INCREASED TENDENCY TO BRUISE [None]
  - INJECTION SITE REACTION [None]
